FAERS Safety Report 5397357-4 (Version None)
Quarter: 2007Q3

REPORT INFORMATION
  Report Type: 
  Country: None (occurrence: None)
  Receive Date: 20070726
  Receipt Date: 20070719
  Transmission Date: 20080115
  Serious: Yes (Other)
  Sender: FDA-Public Use
  Company Number: PHBS2007JP12340

PATIENT
  Sex: Female

DRUGS (1)
  1. ZOMETA [Suspect]

REACTIONS (8)
  - BONE DISORDER [None]
  - OSTEOLYSIS [None]
  - OSTEONECROSIS [None]
  - OSTEOSCLEROSIS [None]
  - PAIN [None]
  - PRIMARY SEQUESTRUM [None]
  - SWELLING [None]
  - TOOTH EXTRACTION [None]
